FAERS Safety Report 16737793 (Version 1)
Quarter: 2019Q3

REPORT INFORMATION
  Report Type: Report from Study
  Country: US (occurrence: US)
  Receive Date: 20190823
  Receipt Date: 20190823
  Transmission Date: 20191005
  Serious: Yes (Other)
  Sender: FDA-Public Use
  Company Number: US-AMGEN-USASL2019133464

PATIENT
  Age: 35 Year
  Sex: Female

DRUGS (1)
  1. REUSABLE AUTOINJECTOR [Suspect]
     Active Substance: DEVICE
     Indication: RHEUMATOID ARTHRITIS
     Dosage: 50 MILLIGRAM, QWK
     Route: 065

REACTIONS (4)
  - Drug ineffective [Unknown]
  - Decreased immune responsiveness [Unknown]
  - Rheumatoid arthritis [Not Recovered/Not Resolved]
  - Fungal infection [Unknown]

NARRATIVE: CASE EVENT DATE: 2019
